FAERS Safety Report 4273303-1 (Version None)
Quarter: 2004Q1

REPORT INFORMATION
  Report Type: 
  Country: None (occurrence: None)
  Receive Date: 20040114
  Receipt Date: 20040108
  Transmission Date: 20041129
  Serious: Yes (Hospitalization)
  Sender: FDA-Public Use
  Company Number: 200410016BVD

PATIENT
  Age: 49 Year
  Sex: Female
  Weight: 58 kg

DRUGS (2)
  1. AVELOX [Suspect]
     Indication: RESPIRATORY TRACT INFECTION
     Dosage: 400 MG, TOTAL DAILY, ORAL
     Route: 048
     Dates: start: 20030219, end: 20030220
  2. BETA BLOCKING AGENTS [Concomitant]

REACTIONS (5)
  - DIPLOPIA [None]
  - LOSS OF CONSCIOUSNESS [None]
  - PARAESTHESIA EAR [None]
  - VISION BLURRED [None]
  - VISUAL DISTURBANCE [None]
